FAERS Safety Report 9795090 (Version 1)
Quarter: 2014Q1

REPORT INFORMATION
  Report Type: Spontaneous
  Country: US (occurrence: US)
  Receive Date: 20140103
  Receipt Date: 20140103
  Transmission Date: 20141002
  Serious: No
  Sender: FDA-Public Use
  Company Number: US-009507513-1312USA010780

PATIENT
  Age: 33 Year
  Sex: Female

DRUGS (8)
  1. DULERA [Suspect]
     Indication: ASTHMA
     Dosage: 2 PUFFS 2 TIMES DAILY
     Route: 055
     Dates: start: 2013, end: 2013
  2. VENTOLIN (ALBUTEROL) [Concomitant]
  3. PRILOSEC [Concomitant]
     Route: 048
  4. CELEXA [Concomitant]
  5. ALBUTEROL [Concomitant]
  6. METFORMIN [Concomitant]
  7. TOPAMAX [Concomitant]
  8. COUMADIN [Concomitant]

REACTIONS (2)
  - Paraesthesia [Recovered/Resolved]
  - Swelling face [Recovered/Resolved]
